FAERS Safety Report 22381777 (Version 1)
Quarter: 2023Q2

REPORT INFORMATION
  Report Type: Report from Study
  Country: IT (occurrence: IT)
  Receive Date: 20230530
  Receipt Date: 20230530
  Transmission Date: 20230722
  Serious: Yes (Hospitalization)
  Sender: FDA-Public Use
  Company Number: None

PATIENT
  Age: 6 Year
  Sex: Male

DRUGS (1)
  1. RISPERDAL [Suspect]
     Active Substance: RISPERIDONE
     Indication: Autism spectrum disorder
     Dosage: 2.5 ML OF SYRUP ADMINISTERED INSTEAD OF 0.25 ML BY MISTAKE BY THE MOTHER, FOR THE FIRST 4 DAYS OF TH
     Route: 048
     Dates: start: 202304, end: 20230502

REACTIONS (3)
  - Overdose [Recovering/Resolving]
  - Somnolence [Recovering/Resolving]
  - Dose calculation error [Recovering/Resolving]

NARRATIVE: CASE EVENT DATE: 20230425
